FAERS Safety Report 8890835 (Version 1)
Quarter: 2012Q4

REPORT INFORMATION
  Report Type: 
  Country: US (occurrence: US)
  Receive Date: 20121107
  Receipt Date: 20121107
  Transmission Date: 20130627
  Serious: No
  Sender: FDA-Public Use
  Company Number: US-ASTRAZENECA-2012SE81636

PATIENT
  Age: 49 Year
  Sex: Female

DRUGS (1)
  1. SEROQUEL XR [Suspect]
     Indication: MOOD ALTERED
     Route: 048

REACTIONS (7)
  - Glucose tolerance impaired [Unknown]
  - Balance disorder [Unknown]
  - Nerve injury [Unknown]
  - Vertigo [Unknown]
  - Blood glucose increased [Unknown]
  - Vision blurred [Unknown]
  - Off label use [Unknown]
